FAERS Safety Report 4953147-5 (Version None)
Quarter: 2006Q1

REPORT INFORMATION
  Report Type: 
  Country: None (occurrence: None)
  Receive Date: 20060324
  Receipt Date: 20051012
  Transmission Date: 20060701
  Serious: Yes (Hospitalization, Disabling, Other)
  Sender: FDA-Public Use
  Company Number: US-MERCK-0510USA07092

PATIENT
  Age: 34 Year
  Sex: Male
  Weight: 102 kg

DRUGS (5)
  1. VIOXX [Suspect]
     Indication: OSTEOARTHRITIS
     Route: 048
     Dates: start: 20011015, end: 20011113
  2. VIOXX [Suspect]
     Indication: JOINT INJURY
     Route: 048
     Dates: start: 20011015, end: 20011113
  3. ZYRTEC [Concomitant]
     Route: 065
  4. NASACORT [Concomitant]
     Route: 065
  5. NAPROXEN [Concomitant]
     Indication: ARTHRALGIA
     Route: 065
     Dates: start: 20011001, end: 20011101

REACTIONS (13)
  - ANXIETY DISORDER [None]
  - CEREBROVASCULAR ACCIDENT [None]
  - CONVULSION [None]
  - DEPRESSION [None]
  - DISCOMFORT [None]
  - DYSPEPSIA [None]
  - GALLBLADDER DISORDER [None]
  - HYPERCHOLESTEROLAEMIA [None]
  - HYPERTENSION [None]
  - HYPERTRIGLYCERIDAEMIA [None]
  - LACUNAR INFARCTION [None]
  - MIGRAINE [None]
  - SARCOIDOSIS [None]
